FAERS Safety Report 7560252-6 (Version None)
Quarter: 2011Q2

REPORT INFORMATION
  Report Type: 
  Country: None (occurrence: None)
  Receive Date: 20110617
  Receipt Date: 20110617
  Transmission Date: 20111010
  Serious: Yes (Other)
  Sender: FDA-Public Use
  Company Number: None

PATIENT
  Sex: Female

DRUGS (3)
  1. PRISTIQ [Suspect]
     Indication: DEPRESSION
     Dosage: 1 ONCE A DAY PO
     Route: 048
     Dates: start: 20110316, end: 20110319
  2. CONCERTA [Concomitant]
  3. TRAZODONE HCL [Concomitant]

REACTIONS (3)
  - HEADACHE [None]
  - THINKING ABNORMAL [None]
  - DECREASED APPETITE [None]
